FAERS Safety Report 9275281 (Version 1)
Quarter: 2013Q2

REPORT INFORMATION
  Report Type: Spontaneous
  Country: US (occurrence: US)
  Receive Date: 20130506
  Receipt Date: 20130506
  Transmission Date: 20140414
  Serious: Yes (Other)
  Sender: FDA-Public Use
  Company Number: US-RB-046733-12

PATIENT
  Sex: Female

DRUGS (3)
  1. SUBOXONE [Suspect]
     Indication: DRUG DEPENDENCE
     Dosage: DOSING DETAILS UNKNOWN
     Route: 065
  2. BUPRENORPHINE GENERIC [Suspect]
     Indication: DRUG DEPENDENCE
     Route: 060
     Dates: end: 20130422
  3. NICOTINE [Suspect]
     Indication: NICOTINE DEPENDENCE
     Dosage: DAILY, DOSING DETAILS UNKNOWN
     Route: 055
     Dates: end: 20130422

REACTIONS (2)
  - Exposure during pregnancy [Recovered/Resolved]
  - Foetal growth restriction [Recovered/Resolved]
